FAERS Safety Report 16335934 (Version 3)
Quarter: 2019Q2

REPORT INFORMATION
  Report Type: Spontaneous
  Country: FR (occurrence: FR)
  Receive Date: 20190521
  Receipt Date: 20190619
  Transmission Date: 20190711
  Serious: Yes (Other)
  Sender: FDA-Public Use
  Company Number: FR-AUROBINDO-AUR-APL-2019-028673

PATIENT

DRUGS (4)
  1. CARBOPLATIN. [Suspect]
     Active Substance: CARBOPLATIN
     Indication: LARGE CELL LUNG CANCER
     Dosage: 415 MILLIGRAM NEOADJUVANT CHEMOTHERAPY
     Route: 065
  2. CARBOPLATIN. [Suspect]
     Active Substance: CARBOPLATIN
     Indication: CHEMOTHERAPY
  3. ALIMTA [Suspect]
     Active Substance: PEMETREXED DISODIUM
     Indication: LARGE CELL LUNG CANCER
     Dosage: 950 MILLIGRAM, NEOADJUVANT CHEMOTHERAPY
     Route: 065
  4. ALIMTA [Suspect]
     Active Substance: PEMETREXED DISODIUM
     Indication: CHEMOTHERAPY

REACTIONS (8)
  - Muscle fatigue [Unknown]
  - Weight decreased [Unknown]
  - Myopathy toxic [Unknown]
  - Mitochondrial toxicity [Unknown]
  - Muscle injury [Unknown]
  - Dyspnoea [Unknown]
  - Oxygen consumption decreased [Unknown]
  - Maximal voluntary ventilation abnormal [Unknown]
